FAERS Safety Report 11067604 (Version 1)
Quarter: 2015Q2

REPORT INFORMATION
  Report Type: Spontaneous
  Country: US (occurrence: US)
  Receive Date: 20150427
  Receipt Date: 20150427
  Transmission Date: 20150821
  Serious: No
  Sender: FDA-Public Use
  Company Number: US-AMGEN-USASP2015037200

PATIENT
  Age: 48 Year
  Sex: Female

DRUGS (1)
  1. ENBREL [Suspect]
     Active Substance: ETANERCEPT
     Indication: PSORIATIC ARTHROPATHY
     Dosage: 50 MG, QWK
     Route: 065
     Dates: start: 20050509

REACTIONS (14)
  - Pain in extremity [Recovered/Resolved]
  - Rash generalised [Not Recovered/Not Resolved]
  - Pruritus generalised [Not Recovered/Not Resolved]
  - Erythema [Unknown]
  - Drug hypersensitivity [Recovered/Resolved]
  - Eye swelling [Unknown]
  - Injection site pruritus [Not Recovered/Not Resolved]
  - Swelling face [Unknown]
  - Animal bite [Recovered/Resolved]
  - Infection [Recovered/Resolved]
  - Abscess [Recovered/Resolved]
  - Injection site urticaria [Not Recovered/Not Resolved]
  - Peripheral swelling [Recovered/Resolved]
  - Urticaria [Not Recovered/Not Resolved]

NARRATIVE: CASE EVENT DATE: 20150403
